FAERS Safety Report 6111107-5 (Version None)
Quarter: 2009Q1

REPORT INFORMATION
  Report Type: 
  Country: None (occurrence: None)
  Receive Date: 20090311
  Receipt Date: 20080523
  Transmission Date: 20090719
  Serious: No
  Sender: FDA-Public Use
  Company Number: US-KINGPHARMUSA00001-K200800611

PATIENT
  Sex: Female
  Weight: 74.83 kg

DRUGS (6)
  1. ALTACE [Suspect]
     Indication: HYPERTENSION
     Dosage: 2.5 MG, QD
     Route: 048
     Dates: start: 20071010, end: 20071205
  2. NIFEDIPINE [Concomitant]
     Indication: HYPERTENSION
     Dosage: 60 MG, QD
     Route: 048
  3. LIPITOR [Concomitant]
     Dosage: 10 MG, QD
     Route: 048
  4. GARLIC                             /01570501/ [Concomitant]
     Dosage: 2000 MG, QD
     Route: 048
  5. ATENOLOL [Concomitant]
     Indication: HYPERTENSION
     Dosage: 25 MG, QPM
     Route: 048
  6. FISH OIL [Concomitant]
     Dosage: UNK, UNK
     Route: 048

REACTIONS (4)
  - BLOOD PRESSURE SYSTOLIC INCREASED [None]
  - CHROMATURIA [None]
  - URINE ODOUR ABNORMAL [None]
  - WEIGHT DECREASED [None]
